FAERS Safety Report 9182064 (Version 1)
Quarter: 2012Q4

REPORT INFORMATION
  Report Type: 
  Country: BE (occurrence: BE)
  Receive Date: 20121030
  Receipt Date: 20121030
  Transmission Date: 20130627
  Serious: Yes (Other)
  Sender: FDA-Public Use
  Company Number: BE-BRISTOL-MYERS SQUIBB COMPANY-17054099

PATIENT
  Age: 59 Year
  Sex: Female

DRUGS (3)
  1. ABILIFY [Suspect]
     Indication: SCHIZOAFFECTIVE DISORDER
  2. LAMOTRIGINE [Suspect]
     Indication: SCHIZOAFFECTIVE DISORDER
  3. LITHIUM [Suspect]
     Indication: SCHIZOAFFECTIVE DISORDER

REACTIONS (4)
  - Type 2 diabetes mellitus [Unknown]
  - Depressed level of consciousness [Unknown]
  - Toxicity to various agents [Unknown]
  - Weight increased [None]
